FAERS Safety Report 17358596 (Version 2)
Quarter: 2020Q1

REPORT INFORMATION
  Report Type: Report from Study
  Country: US (occurrence: US)
  Receive Date: 20200201
  Receipt Date: 20200217
  Transmission Date: 20200409
  Serious: Yes (Other)
  Sender: FDA-Public Use
  Company Number: US-ROCHE-2527958

PATIENT
  Sex: Male
  Weight: 65.38 kg

DRUGS (2)
  1. BREO ELLIPTA [Concomitant]
     Active Substance: FLUTICASONE FUROATE\VILANTEROL TRIFENATATE
     Indication: ASTHMA
     Dosage: 1 PUFF DAILY
     Route: 065
     Dates: start: 20190117
  2. ESBRIET [Suspect]
     Active Substance: PIRFENIDONE
     Indication: IDIOPATHIC PULMONARY FIBROSIS
     Dosage: TAKE 1 TABLET BY MOUTH 3 TIMES A DAY WITH MEALS FOR 7 DAYS. THEN, TAKE 2 TABLET(S) BY MOUTH 3 TIMES
     Route: 048
     Dates: start: 20191118

REACTIONS (3)
  - Gastrointestinal disorder [Recovered/Resolved]
  - Intentional dose omission [Unknown]
  - Decreased appetite [Recovered/Resolved]
